FAERS Safety Report 6109435-2 (Version None)
Quarter: 2009Q1

REPORT INFORMATION
  Report Type: 
  Country: None (occurrence: None)
  Receive Date: 20090310
  Receipt Date: 20090305
  Transmission Date: 20090719
  Serious: Yes (Hospitalization)
  Sender: FDA-Public Use
  Company Number: DE-WYE-G03258609

PATIENT
  Sex: Female
  Weight: 68 kg

DRUGS (7)
  1. TORISEL [Suspect]
     Indication: METASTATIC RENAL CELL CARCINOMA
     Route: 042
     Dates: start: 20080917, end: 20090113
  2. ALLOPURINOL [Concomitant]
     Route: 048
  3. LISINOPRIL [Concomitant]
     Indication: HYPERTENSION
     Route: 048
  4. AQUAPHOR [Concomitant]
     Indication: HYPERTENSION
     Dosage: 1 TABLET PER DAY (DOSE UNKNOWN)
     Route: 048
  5. INSULIN [Concomitant]
     Indication: DIABETES MELLITUS
     Dosage: 10 IU IN THE MORNING, 12 IU IN THE EVENING
     Route: 058
  6. BELOC ZOK [Concomitant]
     Indication: HYPERTENSION
     Dosage: 1 TABLET PER DAY (DOSE UNKNOWN)
     Route: 048
  7. FUROSEMIDE [Concomitant]
     Indication: HYPERTENSION
     Route: 048

REACTIONS (3)
  - BRONCHITIS [None]
  - CONDITION AGGRAVATED [None]
  - DIABETES MELLITUS INADEQUATE CONTROL [None]
